FAERS Safety Report 23033140 (Version 1)
Quarter: 2023Q4

REPORT INFORMATION
  Report Type: Spontaneous
  Country: US (occurrence: US)
  Receive Date: 20231005
  Receipt Date: 20231005
  Transmission Date: 20240110
  Serious: No
  Sender: FDA-Public Use
  Company Number: US-HORIZON THERAPEUTICS-HZN-2022-010079

PATIENT

DRUGS (1)
  1. KRYSTEXXA [Suspect]
     Active Substance: PEGLOTICASE
     Indication: Product used for unknown indication
     Dosage: FIRST INFUSION
     Route: 042

REACTIONS (4)
  - Pain in extremity [Not Recovered/Not Resolved]
  - Eating disorder [Unknown]
  - Chromaturia [Unknown]
  - Jaundice [Unknown]

NARRATIVE: CASE EVENT DATE: 20221102
